FAERS Safety Report 6051786-4 (Version None)
Quarter: 2009Q1

REPORT INFORMATION
  Report Type: 
  Country: None (occurrence: None)
  Receive Date: 20090121
  Receipt Date: 20090121
  Transmission Date: 20090719
  Serious: No
  Sender: FDA-Public Use
  Company Number: None

PATIENT
  Age: 50 Year
  Sex: Female
  Weight: 56.246 kg

DRUGS (1)
  1. BONIVA [Suspect]
     Indication: OSTEOPOROSIS
     Dosage: ONE TABLET MONTHLY PO
     Route: 048
     Dates: start: 20080912, end: 20081012

REACTIONS (10)
  - ARTHRALGIA [None]
  - FATIGUE [None]
  - FEAR [None]
  - JOINT STIFFNESS [None]
  - JOINT SWELLING [None]
  - MOVEMENT DISORDER [None]
  - MUSCULOSKELETAL STIFFNESS [None]
  - NEPHROLITHIASIS [None]
  - PAIN IN JAW [None]
  - SENSORY DISTURBANCE [None]
